FAERS Safety Report 5107276-6 (Version None)
Quarter: 2006Q3

REPORT INFORMATION
  Report Type: 
  Country: None (occurrence: None)
  Receive Date: 20060907
  Receipt Date: 20060907
  Transmission Date: 20061208
  Serious: Yes (Other)
  Sender: FDA-Public Use
  Company Number: 2006BH013102

PATIENT
  Age: 8 Month
  Sex: Male
  Weight: 7.8 kg

DRUGS (1)
  1. ADVATE [Suspect]
     Indication: HAEMORRHAGE
     Dosage: 250 UNITS; AS NEEDED; IV
     Route: 042
     Dates: start: 20060329, end: 20060824

REACTIONS (1)
  - FACTOR VIII INHIBITION [None]
